FAERS Safety Report 5350912-X (Version None)
Quarter: 2007Q2

REPORT INFORMATION
  Report Type: 
  Country: None (occurrence: None)
  Receive Date: 20070606
  Receipt Date: 20070525
  Transmission Date: 20071010
  Serious: Yes (Hospitalization)
  Sender: FDA-Public Use
  Company Number: 2007VX001050

PATIENT
  Age: 64 Year
  Sex: Male

DRUGS (7)
  1. INTERFERON ALFACON-1 [Suspect]
     Indication: HEPATITIS C
     Dosage: 9 UG QD SC
     Route: 058
  2. RIBAVIRIN [Concomitant]
  3. PANTOPRAZOLE SODIUM [Concomitant]
  4. PROCRIT [Concomitant]
  5. VALSARTAN [Concomitant]
  6. OXYCODONE HCL [Concomitant]
  7. ATIVAN [Concomitant]

REACTIONS (6)
  - BILE DUCT OBSTRUCTION [None]
  - COMPLICATIONS OF TRANSPLANTED LIVER [None]
  - GASTROINTESTINAL HAEMORRHAGE [None]
  - TRANSPLANT FAILURE [None]
  - ULCER HAEMORRHAGE [None]
  - WHITE BLOOD CELL COUNT DECREASED [None]
